FAERS Safety Report 16085908 (Version 2)
Quarter: 2019Q1

REPORT INFORMATION
  Report Type: Spontaneous
  Country: JP (occurrence: JP)
  Receive Date: 20190318
  Receipt Date: 20190329
  Transmission Date: 20190418
  Serious: Yes (Death)
  Sender: FDA-Public Use
  Company Number: JP-ASTRAZENECA-2019SE34971

PATIENT
  Age: 74 Year
  Sex: Male

DRUGS (1)
  1. CRESTOR [Suspect]
     Active Substance: ROSUVASTATIN CALCIUM
     Route: 048
     Dates: start: 20190209, end: 20190226

REACTIONS (3)
  - Multiple organ dysfunction syndrome [Fatal]
  - Hepatic function abnormal [Fatal]
  - Alanine aminotransferase increased [Fatal]

NARRATIVE: CASE EVENT DATE: 2019
